FAERS Safety Report 7680357-9 (Version None)
Quarter: 2011Q3

REPORT INFORMATION
  Report Type: 
  Country: None (occurrence: None)
  Receive Date: 20110812
  Receipt Date: 20110804
  Transmission Date: 20111222
  Serious: Yes (Life-Threatening)
  Sender: FDA-Public Use
  Company Number: FR-GLAXOSMITHKLINE-B0737095A

PATIENT
  Sex: Female

DRUGS (23)
  1. LEVEMIR [Concomitant]
     Route: 065
  2. VASTAREL [Concomitant]
     Route: 065
  3. OMEPRAZOLE [Concomitant]
     Route: 065
  4. OXAZEPAM [Concomitant]
     Indication: DEPRESSION
     Route: 065
     Dates: start: 20110415
  5. ASPEGIC 325 [Suspect]
     Indication: PRODUCT USED FOR UNKNOWN INDICATION
     Dosage: 100MG PER DAY
     Route: 048
  6. PLAVIX [Concomitant]
     Route: 065
  7. DOGMATIL [Concomitant]
     Route: 065
  8. XANAX [Concomitant]
     Route: 065
  9. LEVOTHYROXINE SODIUM [Concomitant]
     Route: 065
  10. SECTRAL [Concomitant]
     Route: 065
  11. AMITRIPTYLINE HCL [Concomitant]
     Indication: DEPRESSION
     Route: 065
  12. GLYBURIDE [Concomitant]
     Route: 065
  13. VALIUM [Concomitant]
     Route: 065
  14. METFORMIN HCL [Concomitant]
     Route: 065
  15. PERINDOPRIL ERBUMINE [Concomitant]
     Route: 065
  16. ATORVASTATIN CALCIUM [Concomitant]
     Route: 065
  17. EFFEXOR [Suspect]
     Indication: PRODUCT USED FOR UNKNOWN INDICATION
     Route: 048
     Dates: start: 20110618, end: 20110621
  18. LOVENOX [Concomitant]
     Route: 065
  19. PAROXETINE HCL [Suspect]
     Indication: DEPRESSION
     Dosage: 1UNIT PER DAY
     Route: 048
     Dates: start: 20110415, end: 20110617
  20. COUMADIN [Suspect]
     Indication: PRODUCT USED FOR UNKNOWN INDICATION
     Route: 048
     Dates: start: 20110522, end: 20110621
  21. VISKEN [Concomitant]
     Route: 065
  22. SERC [Concomitant]
     Route: 065
  23. INSULIN [Concomitant]
     Route: 065

REACTIONS (2)
  - SHOCK HAEMORRHAGIC [None]
  - RECTAL HAEMORRHAGE [None]
